FAERS Safety Report 5846339-4 (Version None)
Quarter: 2008Q3

REPORT INFORMATION
  Report Type: 
  Country: None (occurrence: None)
  Receive Date: 20080815
  Receipt Date: 20080806
  Transmission Date: 20090109
  Serious: Yes (Death)
  Sender: FDA-Public Use
  Company Number: GB-JNJFOC-20080802571

PATIENT
  Age: 2 Month
  Sex: Male

DRUGS (2)
  1. ACETAMINOPHEN [Suspect]
     Route: 054
  2. ACETAMINOPHEN [Suspect]
     Indication: DRUG USE FOR UNKNOWN INDICATION
     Dosage: 4.2 GRAM (ALLEGED MAXIMUM DOSE IN 28 HOURS), PER RECTAL
     Route: 054

REACTIONS (2)
  - HEPATIC NECROSIS [None]
  - OVERDOSE [None]
